FAERS Safety Report 13578535 (Version 1)
Quarter: 2017Q2

REPORT INFORMATION
  Report Type: Spontaneous
  Country: US (occurrence: US)
  Receive Date: 20170524
  Receipt Date: 20170524
  Transmission Date: 20170830
  Serious: Yes (Other)
  Sender: FDA-Public Use
  Company Number: US-BAUSCH-BL-2017-017256

PATIENT
  Age: 49 Year
  Sex: Female

DRUGS (2)
  1. MITOMYCIN C [Suspect]
     Active Substance: MITOMYCIN
     Indication: ANAL CANCER RECURRENT
     Dosage: FULL-DOSE
     Route: 065
     Dates: start: 201204
  2. FLUOROURACIL. [Suspect]
     Active Substance: FLUOROURACIL
     Indication: ANAL CANCER RECURRENT
     Dosage: EVERY 96 HOURS, PER DAY
     Route: 065
     Dates: start: 201204

REACTIONS (3)
  - Cytopenia [Not Recovered/Not Resolved]
  - Neutropenia [Unknown]
  - Thrombocytopenia [Unknown]

NARRATIVE: CASE EVENT DATE: 2012
